FAERS Safety Report 15713484 (Version 4)
Quarter: 2019Q1

REPORT INFORMATION
  Report Type: Not Available
  Country: US (occurrence: US)
  Receive Date: 20181212
  Receipt Date: 20190110
  Transmission Date: 20190417
  Serious: Yes (Death)
  Sender: FDA-Public Use
  Company Number: US-NEUROCRINE BIOSCIENCES INC.-2018NBI03479

PATIENT
  Age: 71 Year
  Sex: Male

DRUGS (12)
  1. HYDROCODONE BITARTRATE AND ACETAMINOPHEN [Concomitant]
     Active Substance: ACETAMINOPHEN\HYDROCODONE BITARTRATE
     Dosage: 5 MG/325 MG
  2. LAMOTRIGINE. [Concomitant]
     Active Substance: LAMOTRIGINE
  3. PANTOPRAZOLE [Concomitant]
     Active Substance: PANTOPRAZOLE
  4. INGREZZA [Suspect]
     Active Substance: VALBENAZINE
     Indication: TARDIVE DYSKINESIA
     Route: 048
     Dates: start: 20170705, end: 20181204
  5. METOPROLOL. [Concomitant]
     Active Substance: METOPROLOL
  6. MEMANTINE. [Concomitant]
     Active Substance: MEMANTINE
  7. ATORVASTATIN [Concomitant]
     Active Substance: ATORVASTATIN
  8. PAROXETINE. [Concomitant]
     Active Substance: PAROXETINE
     Route: 048
  9. ASPIRIN. [Concomitant]
     Active Substance: ASPIRIN
  10. DONEPEZIL. [Concomitant]
     Active Substance: DONEPEZIL
  11. LITHIUM CARBONATE. [Concomitant]
     Active Substance: LITHIUM CARBONATE
  12. TRAZODONE [Concomitant]
     Active Substance: TRAZODONE HYDROCHLORIDE

REACTIONS (2)
  - Haemorrhagic stroke [Fatal]
  - Cardiac murmur [Unknown]

NARRATIVE: CASE EVENT DATE: 20181128
